FAERS Safety Report 4387537-9 (Version None)
Quarter: 2004Q2

REPORT INFORMATION
  Report Type: 
  Country: None (occurrence: None)
  Receive Date: 20040630
  Receipt Date: 20040505
  Transmission Date: 20050107
  Serious: No
  Sender: FDA-Public Use
  Company Number: US-GLAXOSMITHKLINE-A0509668A

PATIENT
  Age: 62 Year
  Sex: Female

DRUGS (5)
  1. ADVAIR HFA [Suspect]
     Indication: ASTHMA
     Dosage: 1PUFF TWICE PER DAY
     Route: 055
     Dates: start: 20030401
  2. FOSAMAX [Concomitant]
  3. LOVASTATIN [Concomitant]
  4. ZIAC [Concomitant]
  5. VITAMIN D [Concomitant]

REACTIONS (1)
  - TONGUE GEOGRAPHIC [None]
